FAERS Safety Report 6077929-4 (Version None)
Quarter: 2009Q1

REPORT INFORMATION
  Report Type: 
  Country: None (occurrence: None)
  Receive Date: 20090213
  Receipt Date: 20090202
  Transmission Date: 20090719
  Serious: Yes (Hospitalization, Disabling, Other)
  Sender: FDA-Public Use
  Company Number: IL-ROCHE-612823

PATIENT
  Age: 32 Year
  Sex: Female

DRUGS (9)
  1. MYCOPHENOLATE MOFETIL [Suspect]
     Indication: LIVER TRANSPLANT REJECTION
     Route: 048
     Dates: start: 20060201, end: 20060501
  2. MYCOPHENOLATE MOFETIL [Suspect]
     Route: 048
     Dates: start: 20060501, end: 20060901
  3. MYCOPHENOLATE MOFETIL [Suspect]
     Dosage: STOP DATE: UNSPECIFIED DATE IN 2008
     Route: 048
     Dates: start: 20080901
  4. MYCOPHENOLATE MOFETIL [Suspect]
     Route: 048
     Dates: start: 20080901
  5. TACROLIMUS [Concomitant]
     Indication: LIVER TRANSPLANT
     Dates: start: 20050101
  6. URSOLIT [Concomitant]
     Indication: BILE DUCT STENOSIS
  7. ALDACTONE [Concomitant]
  8. DERALIN [Concomitant]
  9. OMEPRAZOLE [Concomitant]

REACTIONS (5)
  - CHONDROLYSIS [None]
  - DIARRHOEA [None]
  - GASTROINTESTINAL HAEMORRHAGE [None]
  - OSTEOPENIA [None]
  - PANCYTOPENIA [None]
